FAERS Safety Report 16767730 (Version 1)
Quarter: 2019Q3

REPORT INFORMATION
  Report Type: Spontaneous
  Country: AU (occurrence: AU)
  Receive Date: 20190903
  Receipt Date: 20190903
  Transmission Date: 20191005
  Serious: Yes (Other)
  Sender: FDA-Public Use
  Company Number: AU-SA-2019SA241107

PATIENT
  Age: 68 Year
  Sex: Male

DRUGS (10)
  1. METOPROLOL TARTRATE. [Concomitant]
     Active Substance: METOPROLOL TARTRATE
     Indication: PRODUCT USED FOR UNKNOWN INDICATION
     Dosage: 25 MG DAILY
     Route: 065
  2. IRBESARTAN. [Concomitant]
     Active Substance: IRBESARTAN
     Indication: PRODUCT USED FOR UNKNOWN INDICATION
     Dosage: 150 MG DAILY
     Route: 065
  3. LEFLUNOMIDE. [Suspect]
     Active Substance: LEFLUNOMIDE
     Dosage: 10 MG DAILY
     Route: 048
  4. TACROLIMUS MONOHYDRATE [Suspect]
     Active Substance: TACROLIMUS
     Indication: PRODUCT USED FOR UNKNOWN INDICATION
     Dosage: 2MG DAILY
     Route: 065
  5. LEFLUNOMIDE. [Suspect]
     Active Substance: LEFLUNOMIDE
     Indication: RHEUMATOID ARTHRITIS
     Dosage: 25 MG DAILY
     Route: 048
  6. ATORVASTATIN [ATORVASTATIN CALCIUM TRIHYDRATE] [Concomitant]
     Indication: PRODUCT USED FOR UNKNOWN INDICATION
     Dosage: 10 MG SECOND DAILY
     Route: 065
  7. BUDESONIDE. [Concomitant]
     Active Substance: BUDESONIDE
     Indication: PRODUCT USED FOR UNKNOWN INDICATION
     Route: 065
  8. PREDNISOLONE. [Concomitant]
     Active Substance: PREDNISOLONE
     Indication: PRODUCT USED FOR UNKNOWN INDICATION
     Dosage: 7.5 MG DAILY
     Route: 065
  9. DARBEPOETIN ALFA [Concomitant]
     Active Substance: DARBEPOETIN ALFA
     Indication: PRODUCT USED FOR UNKNOWN INDICATION
     Dosage: 40 PG MONTHLY
     Route: 065
  10. WARFARIN POTASSIUM [Concomitant]
     Active Substance: WARFARIN POTASSIUM
     Indication: PRODUCT USED FOR UNKNOWN INDICATION
     Dosage: 2MG DAILY
     Route: 065

REACTIONS (9)
  - Enterocutaneous fistula [Unknown]
  - Cryptitis [Unknown]
  - Granuloma [Unknown]
  - Wound decomposition [Unknown]
  - Enteritis [Unknown]
  - Diarrhoea [Recovering/Resolving]
  - Abdominal hernia [Unknown]
  - Colitis [Unknown]
  - Colonic abscess [Unknown]
